FAERS Safety Report 13504517 (Version 1)
Quarter: 2017Q2

REPORT INFORMATION
  Report Type: Spontaneous
  Country: US (occurrence: US)
  Receive Date: 20170502
  Receipt Date: 20170502
  Transmission Date: 20170830
  Serious: No
  Sender: FDA-Public Use
  Company Number: US-WARNER CHILCOTT-2016-001813

PATIENT
  Sex: Female

DRUGS (1)
  1. FEMRING [Suspect]
     Active Substance: ESTRADIOL ACETATE
     Indication: MENOPAUSAL SYMPTOMS
     Dosage: 1 DF, UNKNOWN
     Route: 067
     Dates: start: 201603

REACTIONS (4)
  - Insomnia [Unknown]
  - Hot flush [Unknown]
  - Fatigue [Unknown]
  - Drug effect incomplete [Not Recovered/Not Resolved]

NARRATIVE: CASE EVENT DATE: 201607
